FAERS Safety Report 15093612 (Version 2)
Quarter: 2018Q3

REPORT INFORMATION
  Report Type: Spontaneous
  Country: US (occurrence: US)
  Receive Date: 20180629
  Receipt Date: 20180726
  Transmission Date: 20181010
  Serious: Yes (Other)
  Sender: FDA-Public Use
  Company Number: US-009507513-1806USA010475

PATIENT
  Sex: Female
  Weight: 80.4 kg

DRUGS (1)
  1. NEXPLANON [Suspect]
     Active Substance: ETONOGESTREL
     Indication: CONTRACEPTION
     Dosage: 1 IMPLANT, ONCE
     Route: 058
     Dates: start: 20180530, end: 20180622

REACTIONS (4)
  - Complication associated with device [Recovered/Resolved]
  - Pregnancy with implant contraceptive [Not Recovered/Not Resolved]
  - Device dislocation [Recovered/Resolved]
  - Unintended pregnancy [Not Recovered/Not Resolved]

NARRATIVE: CASE EVENT DATE: 2018
